FAERS Safety Report 20690912 (Version 1)
Quarter: 2022Q2

REPORT INFORMATION
  Report Type: Spontaneous
  Country: US (occurrence: None)
  Receive Date: 20220408
  Receipt Date: 20220408
  Transmission Date: 20220721
  Serious: Yes (Life-Threatening)
  Sender: FDA-Public Use
  Company Number: None

PATIENT
  Age: 16 Year
  Sex: Female
  Weight: 65.77 kg

DRUGS (2)
  1. DEVICE\NICOTINE [Suspect]
     Active Substance: DEVICE\NICOTINE
  2. ESCITALOPRAM [Concomitant]
     Active Substance: ESCITALOPRAM OXALATE

REACTIONS (5)
  - Dizziness [None]
  - Fall [None]
  - Generalised tonic-clonic seizure [None]
  - Incorrect dose administered [None]
  - Substance abuse [None]

NARRATIVE: CASE EVENT DATE: 20220308
